FAERS Safety Report 15234296 (Version 1)
Quarter: 2018Q3

REPORT INFORMATION
  Report Type: Spontaneous
  Country: GR (occurrence: GR)
  Receive Date: 20180803
  Receipt Date: 20180803
  Transmission Date: 20181010
  Serious: Yes (Hospitalization, Other)
  Sender: FDA-Public Use
  Company Number: GR-CONCORDIA PHARMACEUTICALS INC.-E2B_00015151

PATIENT
  Age: 85 Year
  Sex: Male

DRUGS (4)
  1. THEOPHYLLINE [Suspect]
     Active Substance: THEOPHYLLINE ANHYDROUS
     Dosage: UNK UNK, TOTAL
  2. DIGOXIN. [Suspect]
     Active Substance: DIGOXIN
  3. VERAPAMIL [Suspect]
     Active Substance: VERAPAMIL HYDROCHLORIDE
  4. AMIODARONE HYDROCHLORIDE. [Suspect]
     Active Substance: AMIODARONE HYDROCHLORIDE

REACTIONS (14)
  - Nausea [Unknown]
  - Hypotension [Unknown]
  - Shock [Unknown]
  - Diarrhoea [Unknown]
  - Suicide attempt [Unknown]
  - Pneumonia aspiration [Unknown]
  - Tachycardia [Recovered/Resolved]
  - Discomfort [Unknown]
  - Loss of consciousness [Unknown]
  - Palpitations [Recovered/Resolved]
  - Hypokalaemia [Recovered/Resolved]
  - Vomiting [Unknown]
  - Atrial fibrillation [Unknown]
  - Acute kidney injury [Recovered/Resolved]
